FAERS Safety Report 15328744 (Version 1)
Quarter: 2018Q3

REPORT INFORMATION
  Report Type: Spontaneous
  Country: SE (occurrence: SE)
  Receive Date: 20180829
  Receipt Date: 20180829
  Transmission Date: 20181010
  Serious: Yes (Other)
  Sender: FDA-Public Use
  Company Number: SE-TEVA-2018-SE-949167

PATIENT
  Age: 30 Year
  Sex: Female

DRUGS (2)
  1. FLUCONAZOLE. [Suspect]
     Active Substance: FLUCONAZOLE
     Dosage: 150 MG
     Dates: start: 20180422, end: 20180422
  2. FLUCONAZOLE. [Suspect]
     Active Substance: FLUCONAZOLE
     Indication: FUNGAL INFECTION
     Dosage: 150 MG
     Dates: start: 20170809, end: 20170809

REACTIONS (2)
  - Polyarthritis [Recovered/Resolved]
  - Vulvovaginal disorder [Recovered/Resolved]

NARRATIVE: CASE EVENT DATE: 20170810
